FAERS Safety Report 5782873-3 (Version None)
Quarter: 2008Q2

REPORT INFORMATION
  Report Type: 
  Country: None (occurrence: None)
  Receive Date: 20080619
  Receipt Date: 20080610
  Transmission Date: 20081010
  Serious: Yes (Other)
  Sender: FDA-Public Use
  Company Number: 2008AP000348

PATIENT
  Age: 33 Year
  Sex: Female

DRUGS (7)
  1. PAROXETINE HCL [Suspect]
     Dosage: 20 MG; PO; QD; 10 MG; PO; QD; 40 MG; PO; 20 MG; PO; 10  MG; QD; 30 MG; PO; 30 MG; PO; 30 MG; PO
     Route: 048
     Dates: start: 19960702
  2. PAROXETINE HCL [Suspect]
     Dosage: 20 MG; PO; QD; 10 MG; PO; QD; 40 MG; PO; 20 MG; PO; 10  MG; QD; 30 MG; PO; 30 MG; PO; 30 MG; PO
     Route: 048
     Dates: start: 20040813
  3. PAROXETINE HCL [Suspect]
     Dosage: 20 MG; PO; QD; 10 MG; PO; QD; 40 MG; PO; 20 MG; PO; 10  MG; QD; 30 MG; PO; 30 MG; PO; 30 MG; PO
     Route: 048
     Dates: start: 20051201
  4. PAROXETINE HCL [Suspect]
     Dosage: 20 MG; PO; QD; 10 MG; PO; QD; 40 MG; PO; 20 MG; PO; 10  MG; QD; 30 MG; PO; 30 MG; PO; 30 MG; PO
     Route: 048
     Dates: start: 20080401
  5. DIAZEPAM [Concomitant]
  6. LANSOPRAZOLE [Concomitant]
  7. RANITIDINE [Concomitant]

REACTIONS (24)
  - APATHY [None]
  - BREAST PROSTHESIS USER [None]
  - CHOLELITHIASIS [None]
  - CRYING [None]
  - DECREASED APPETITE [None]
  - DEPRESSED MOOD [None]
  - DISTURBANCE IN ATTENTION [None]
  - DRUG INTOLERANCE [None]
  - DRUG WITHDRAWAL SYNDROME [None]
  - DYSPEPSIA [None]
  - FALL [None]
  - FEELING ABNORMAL [None]
  - GASTROOESOPHAGEAL REFLUX DISEASE [None]
  - HIATUS HERNIA [None]
  - HYPERSOMNIA [None]
  - ILL-DEFINED DISORDER [None]
  - JOINT INJURY [None]
  - MEDICAL DEVICE COMPLICATION [None]
  - NONSPECIFIC REACTION [None]
  - PERFORMANCE STATUS DECREASED [None]
  - PHARMACEUTICAL PRODUCT COMPLAINT [None]
  - SMEAR CERVIX ABNORMAL [None]
  - SUICIDAL IDEATION [None]
  - VISUAL DISTURBANCE [None]
